FAERS Safety Report 12301315 (Version 3)
Quarter: 2017Q1

REPORT INFORMATION
  Report Type: Spontaneous
  Country: FR (occurrence: FR)
  Receive Date: 20160425
  Receipt Date: 20170221
  Transmission Date: 20170428
  Serious: Yes (Hospitalization)
  Sender: FDA-Public Use
  Company Number: FR-TEVA-652725ISR

PATIENT
  Age: 77 Year
  Sex: Male

DRUGS (9)
  1. ZITHROMAX [Suspect]
     Active Substance: AZITHROMYCIN DIHYDRATE
     Indication: ANTIBIOTIC PROPHYLAXIS
     Route: 048
     Dates: start: 201510, end: 20160316
  2. LOPERAMIDE BASE [Suspect]
     Active Substance: LOPERAMIDE
     Dosage: 1 DOSAGE FORMS DAILY;
     Route: 048
     Dates: start: 2014, end: 20160331
  3. AVODART [Suspect]
     Active Substance: DUTASTERIDE
     Dosage: 1 DOSAGE FORMS DAILY;
     Route: 048
     Dates: start: 2013, end: 20160331
  4. PRIVIGEN [Suspect]
     Active Substance: HUMAN IMMUNOGLOBULIN G
     Indication: IMMUNODEFICIENCY
     Route: 042
     Dates: start: 20160303, end: 20160331
  5. JOSIR LP 0.4 MG [Suspect]
     Active Substance: TAMSULOSIN
     Dosage: 1 DOSAGE FORMS DAILY;
     Route: 048
     Dates: start: 2013, end: 20160331
  6. DESLORATADINE. [Suspect]
     Active Substance: DESLORATADINE
     Dosage: 1 DOSAGE FORMS DAILY;
     Route: 048
     Dates: start: 2014, end: 20160331
  7. SPASFON [Suspect]
     Active Substance: PHLOROGLUCINOL
     Dosage: 2 DOSAGE FORMS DAILY;
     Route: 048
     Dates: start: 2013, end: 20160331
  8. NEO-CODION ADULTES [Suspect]
     Active Substance: CODEINE
     Indication: BRONCHITIS CHRONIC
     Dosage: 15 ML DAILY;
     Route: 048
     Dates: start: 20150101, end: 20160331
  9. ZYDELIG [Suspect]
     Active Substance: IDELALISIB
     Indication: CHRONIC LYMPHOCYTIC LEUKAEMIA
     Dosage: 3 DOSAGE FORMS DAILY;
     Route: 048
     Dates: start: 201412, end: 20160321

REACTIONS (5)
  - Dermatitis exfoliative [Recovered/Resolved]
  - Eosinophilia [Recovered/Resolved]
  - Oedema [Recovered/Resolved]
  - Hepatic function abnormal [Recovered/Resolved]
  - Skin exfoliation [Recovered/Resolved]

NARRATIVE: CASE EVENT DATE: 20160215
